FAERS Safety Report 6843998-4 (Version None)
Quarter: 2010Q3

REPORT INFORMATION
  Report Type: 
  Country: None (occurrence: None)
  Receive Date: 20100714
  Receipt Date: 20100714
  Transmission Date: 20110219
  Serious: Yes (Other)
  Sender: FDA-Public Use
  Company Number: None

PATIENT
  Age: 71 Year
  Sex: Male
  Weight: 98.8842 kg

DRUGS (1)
  1. PLAVIX [Suspect]
     Indication: CORONARY ARTERIAL STENT INSERTION
     Dosage: 75 MG ONE A DAY
     Dates: start: 20100605, end: 20100713

REACTIONS (4)
  - BLOOD COUNT ABNORMAL [None]
  - DYSPNOEA [None]
  - PAIN IN EXTREMITY [None]
  - SMALL INTESTINAL HAEMORRHAGE [None]
